FAERS Safety Report 5479172-6 (Version None)
Quarter: 2007Q4

REPORT INFORMATION
  Report Type: 
  Country: None (occurrence: None)
  Receive Date: 20071008
  Receipt Date: 20070926
  Transmission Date: 20080405
  Serious: Yes (Hospitalization)
  Sender: FDA-Public Use
  Company Number: GB-ELI_LILLY_AND_COMPANY-GB200709006577

PATIENT
  Age: 21 Year
  Sex: Female

DRUGS (2)
  1. OLANZAPINE [Suspect]
  2. OLANZAPINE [Suspect]
     Dosage: 100 MG, UNK

REACTIONS (4)
  - DELIRIUM [None]
  - INTENTIONAL OVERDOSE [None]
  - MANIA [None]
  - PSYCHOTIC DISORDER [None]
